FAERS Safety Report 8181922-5 (Version None)
Quarter: 2012Q1

REPORT INFORMATION
  Report Type: 
  Country: None (occurrence: None)
  Receive Date: 20120302
  Receipt Date: 20120223
  Transmission Date: 20120608
  Serious: No
  Sender: FDA-Public Use
  Company Number: US-PFIZER INC-2012049389

PATIENT
  Sex: Female

DRUGS (14)
  1. LEXAPRO [Suspect]
     Dosage: UNK
  2. PERCOCET [Suspect]
     Dosage: UNK
  3. TYLOX [Suspect]
     Dosage: UNK
  4. DEMEROL [Suspect]
     Dosage: UNK
  5. CIPRO [Suspect]
     Dosage: UNK
  6. HYDROCODONE BITARTRATE [Suspect]
     Dosage: UNK
  7. REGLAN [Suspect]
     Dosage: UNK
  8. IBUPROFEN [Suspect]
     Dosage: UNK
  9. ZOLOFT [Suspect]
     Dosage: UNK
  10. DARVOCET-N 50 [Suspect]
     Dosage: UNK
  11. BACTRIM [Suspect]
     Dosage: UNK
  12. OXYCODONE HYDROCHLORIDE [Suspect]
     Dosage: UNK
  13. PREDNISONE [Suspect]
     Dosage: UNK
  14. ZETIA [Suspect]
     Dosage: UNK

REACTIONS (1)
  - DRUG HYPERSENSITIVITY [None]
